FAERS Safety Report 6146625-7 (Version None)
Quarter: 2009Q2

REPORT INFORMATION
  Report Type: 
  Country: None (occurrence: None)
  Receive Date: 20090407
  Receipt Date: 20090327
  Transmission Date: 20091009
  Serious: Yes (Other)
  Sender: FDA-Public Use
  Company Number: US-PFIZER INC-2008160627

PATIENT
  Sex: Male
  Weight: 90.703 kg

DRUGS (15)
  1. CAVERJECT [Suspect]
     Indication: ERECTILE DYSFUNCTION
     Dosage: 20 UG, AS NEEDED
     Dates: start: 20020101
  2. VIAGRA [Suspect]
     Indication: ERECTILE DYSFUNCTION
     Dosage: 100 MG, AS NEEDED
  3. CENTRUM SILVER [Concomitant]
     Dosage: UNK
  4. FISH OIL [Concomitant]
     Dosage: UNK
  5. SAW PALMETTO [Concomitant]
     Dosage: UNK
  6. CITRACAL [Concomitant]
     Dosage: UNK
  7. RANEXA [Concomitant]
     Dosage: UNK
  8. ATENOLOL [Concomitant]
     Dosage: UNK
  9. DILANTIN [Concomitant]
     Dosage: UNK
  10. PRILOSEC [Concomitant]
     Dosage: UNK
  11. BENICAR [Concomitant]
     Dosage: UNK
  12. LIPITOR [Concomitant]
     Dosage: UNK
  13. PLAVIX [Concomitant]
     Dosage: UNK
  14. ACETYLSALICYLIC ACID [Concomitant]
     Dosage: UNK
  15. AVODART [Concomitant]
     Dosage: UNK

REACTIONS (7)
  - ARTERIAL OCCLUSIVE DISEASE [None]
  - BLOOD CHOLESTEROL INCREASED [None]
  - BLOOD PRESSURE INCREASED [None]
  - CHEST PAIN [None]
  - DRUG INEFFECTIVE [None]
  - PROSTATIC SPECIFIC ANTIGEN INCREASED [None]
  - PROSTATOMEGALY [None]
